FAERS Safety Report 21378264 (Version 1)
Quarter: 2022Q3

REPORT INFORMATION
  Report Type: Report from Study
  Country: JP (occurrence: JP)
  Receive Date: 20220927
  Receipt Date: 20220927
  Transmission Date: 20221027
  Serious: Yes (Hospitalization)
  Sender: FDA-Public Use
  Company Number: JP-ABBVIE-4129563

PATIENT
  Age: 37 Year
  Sex: Male

DRUGS (6)
  1. NORVIR [Suspect]
     Active Substance: RITONAVIR
     Indication: Product used for unknown indication
     Route: 048
     Dates: start: 20070330, end: 20110707
  2. NORVIR [Suspect]
     Active Substance: RITONAVIR
     Indication: Product used for unknown indication
     Route: 048
     Dates: start: 20110708, end: 20140823
  3. EPZICOM [Suspect]
     Active Substance: ABACAVIR SULFATE\LAMIVUDINE
     Indication: HIV infection
     Dosage: QD
     Route: 048
     Dates: start: 20110604, end: 20110608
  4. EMTRICITABINE\TENOFOVIR DISOPROXIL FUMARATE [Concomitant]
     Active Substance: EMTRICITABINE\TENOFOVIR DISOPROXIL FUMARATE
     Indication: HIV infection
     Dosage: QD
     Route: 048
     Dates: start: 20110609, end: 20170216
  5. EMTRICITABINE\TENOFOVIR DISOPROXIL FUMARATE [Concomitant]
     Active Substance: EMTRICITABINE\TENOFOVIR DISOPROXIL FUMARATE
     Indication: HIV infection
     Dosage: QD
     Route: 048
     Dates: start: 20070112, end: 20110603
  6. REYATAZ [Concomitant]
     Active Substance: ATAZANAVIR SULFATE
     Indication: HIV infection
     Dosage: QD
     Route: 048
     Dates: start: 20040330, end: 20121012

REACTIONS (23)
  - Drug hypersensitivity [Recovered/Resolved]
  - Diarrhoea [Recovering/Resolving]
  - Gamma-glutamyltransferase increased [Recovering/Resolving]
  - Asthma [Not Recovered/Not Resolved]
  - Motion sickness [Recovered/Resolved]
  - Renal impairment [Recovering/Resolving]
  - Adjustment disorder [Recovering/Resolving]
  - Hordeolum [Recovered/Resolved]
  - Depression [Recovering/Resolving]
  - Depression [Recovering/Resolving]
  - Insomnia [Recovered/Resolved]
  - Depressed mood [Recovered/Resolved]
  - Blood bilirubin increased [Recovered/Resolved]
  - Liver disorder [Not Recovered/Not Resolved]
  - Malaise [Recovered/Resolved]
  - Beta 2 microglobulin urine increased [Recovering/Resolving]
  - Asthenia [Unknown]
  - Nausea [Recovered/Resolved]
  - Malaise [Unknown]
  - Dyspnoea [Unknown]
  - Wheezing [Recovered/Resolved]
  - Depressed mood [Unknown]
  - Dyspnoea [Unknown]

NARRATIVE: CASE EVENT DATE: 20070112
